FAERS Safety Report 16807535 (Version 2)
Quarter: 2019Q4

REPORT INFORMATION
  Report Type: Report from Study
  Country: None (occurrence: KW)
  Receive Date: 20190914
  Receipt Date: 20191012
  Transmission Date: 20200122
  Serious: Yes (Hospitalization)
  Sender: FDA-Public Use
  Company Number: KW-ABBVIE-19K-091-2922197-00

PATIENT
  Age: 32 Year
  Sex: Female
  Weight: 56 kg

DRUGS (3)
  1. IMURAN [Concomitant]
     Active Substance: AZATHIOPRINE
     Indication: ANTIINFLAMMATORY THERAPY
     Route: 048
     Dates: start: 201907
  2. IMURAN [Concomitant]
     Active Substance: AZATHIOPRINE
     Indication: IMMUNOSUPPRESSANT DRUG THERAPY
  3. HUMIRA [Suspect]
     Active Substance: ADALIMUMAB
     Indication: CROHN^S DISEASE
     Route: 058
     Dates: start: 20181224, end: 20190901

REACTIONS (2)
  - Malaise [Not Recovered/Not Resolved]
  - Drug ineffective [Not Recovered/Not Resolved]

NARRATIVE: CASE EVENT DATE: 2019
